FAERS Safety Report 11852864 (Version 1)
Quarter: 2015Q4

REPORT INFORMATION
  Report Type: Report from Study
  Country: US (occurrence: US)
  Receive Date: 20151218
  Receipt Date: 20151218
  Transmission Date: 20160305
  Serious: Yes (Hospitalization)
  Sender: FDA-Public Use
  Company Number: US-ABBVIE-15K-163-1518179-00

PATIENT
  Sex: Female

DRUGS (5)
  1. METRONIDAZOLE. [Suspect]
     Active Substance: METRONIDAZOLE
     Indication: ABDOMINAL PAIN UPPER
     Route: 065
     Dates: start: 2015, end: 2015
  2. HUMIRA [Suspect]
     Active Substance: ADALIMUMAB
     Indication: CROHN^S DISEASE
     Route: 058
     Dates: start: 2014, end: 201509
  3. CEPHALEXIN. [Suspect]
     Active Substance: CEPHALEXIN
     Indication: ABDOMINAL PAIN UPPER
     Route: 065
     Dates: start: 2015, end: 2015
  4. CEPHALEXIN. [Suspect]
     Active Substance: CEPHALEXIN
     Indication: ABDOMINAL DISTENSION
  5. METRONIDAZOLE. [Suspect]
     Active Substance: METRONIDAZOLE
     Indication: ABDOMINAL DISTENSION

REACTIONS (7)
  - Drug hypersensitivity [Not Recovered/Not Resolved]
  - Condition aggravated [Unknown]
  - Headache [Unknown]
  - Rash papular [Unknown]
  - Back pain [Unknown]
  - Abdominal distension [Unknown]
  - Abdominal pain [Unknown]

NARRATIVE: CASE EVENT DATE: 2015
